FAERS Safety Report 25771849 (Version 2)
Quarter: 2025Q4

REPORT INFORMATION
  Report Type: Report from Study
  Country: US (occurrence: US)
  Receive Date: 20250908
  Receipt Date: 20251001
  Transmission Date: 20260117
  Serious: Yes (Hospitalization, Other)
  Sender: ABBVIE
  Company Number: US-ABBVIE-6447182

PATIENT
  Age: 71 Year
  Sex: Female
  Weight: 72 kg

DRUGS (9)
  1. RINVOQ [Suspect]
     Active Substance: UPADACITINIB
     Indication: Rheumatoid arthritis
     Dosage: FORM STRENGTH:15 MILLIGRAM
     Route: 048
     Dates: start: 20241216, end: 20250919
  2. RINVOQ [Suspect]
     Active Substance: UPADACITINIB
     Indication: Rheumatoid arthritis
     Dosage: FORM STRENGTH: 15 MILLIGRAM
     Route: 048
     Dates: start: 20250925
  3. CELEXA [Concomitant]
     Active Substance: CITALOPRAM HYDROBROMIDE
     Indication: Depression
  4. METHOTREXATE [Concomitant]
     Active Substance: METHOTREXATE
     Indication: Rheumatoid arthritis
  5. HYDROXYCHLOROQUINE [Concomitant]
     Active Substance: HYDROXYCHLOROQUINE
     Indication: Rheumatoid arthritis
  6. ABILIFY [Concomitant]
     Active Substance: ARIPIPRAZOLE
     Indication: Depression
  7. ESTROGENS [Concomitant]
     Active Substance: ESTROGENS
     Indication: Hormone replacement therapy
  8. PILOCARPINE [Concomitant]
     Active Substance: PILOCARPINE
     Indication: Sjogren^s syndrome
  9. BUPROPION [Concomitant]
     Active Substance: BUPROPION
     Indication: Depression
     Dosage: WELLBUTRIN

REACTIONS (4)
  - Nephrolithiasis [Recovered/Resolved]
  - Sepsis [Recovered/Resolved]
  - Urinary tract obstruction [Recovered/Resolved]
  - White blood cell count increased [Recovered/Resolved]

NARRATIVE: CASE EVENT DATE: 20250903
